FAERS Safety Report 9628533 (Version 2)
Quarter: 2013Q4

REPORT INFORMATION
  Report Type: Spontaneous
  Country: ES (occurrence: ES)
  Receive Date: 20131017
  Receipt Date: 20131030
  Transmission Date: 20140711
  Serious: Yes (Death, Hospitalization)
  Sender: FDA-Public Use
  Company Number: ES-TEVA-430991ISR

PATIENT
  Age: 45 Year
  Sex: Male

DRUGS (17)
  1. FENTANYL [Suspect]
     Indication: BREAKTHROUGH PAIN
     Dosage: INCREASED TO 100 MICROG/72H
     Route: 062
     Dates: start: 200809
  2. FENTANYL [Suspect]
     Indication: INTENTIONAL DRUG MISUSE
     Dosage: THEN APPLIED 3 PATCHES AT SAME TIME (300 MICROG/H)
     Route: 062
     Dates: start: 200809
  3. FENTANYL [Suspect]
     Route: 062
     Dates: start: 200809
  4. FENTANYL [Suspect]
     Indication: BREAKTHROUGH PAIN
     Dosage: 400 MICROG AS REQUIRED; LATER RECEIVED 1200 MICROG
     Route: 048
     Dates: start: 200809
  5. FENTANYL [Suspect]
     Indication: INTENTIONAL DRUG MISUSE
     Dosage: 1200 MICROG WITH APPROXIMATELY 8 UNITS/D
     Route: 048
     Dates: start: 200809
  6. OXYCODONE [Suspect]
     Indication: BREAKTHROUGH PAIN
     Dosage: CONTROLLED RELEASE. INCREASED TO 60 MG/8H
     Route: 065
     Dates: start: 200906
  7. OXYCODONE [Suspect]
     Indication: INTENTIONAL DRUG MISUSE
     Dosage: CONTROLLED RELEASE
     Route: 065
     Dates: start: 200906
  8. OXYCODONE [Suspect]
     Dosage: 10MG RAPID-RELEASE AS REQUIRED; THEN 20 MG/24H
     Route: 065
     Dates: start: 200906
  9. OXYCODONE [Suspect]
     Dosage: RAPID-RELEASE; THEN TOOK 4 OR 5 X 20MG IN 12 H
     Route: 065
     Dates: start: 200906
  10. OXYCODONE [Suspect]
     Dosage: 4 OR 5 RAPID-RELEASE 20MG TAKEN IN 12H (BEFORE JUNE 2010 ADMISSION)
     Route: 065
     Dates: start: 200906
  11. ALPRAZOLAM [Concomitant]
     Indication: DEPRESSION
     Dosage: 2 MILLIGRAM DAILY; THEN 0.5 MG/8H
     Route: 065
  12. ALPRAZOLAM [Concomitant]
     Dosage: 1.5 MILLIGRAM DAILY; THEN TOOK 0.5MG SUBLINGUALLY
     Route: 065
  13. ALPRAZOLAM [Concomitant]
     Dosage: 0.5MG SUBLINGUALLY IN 12H
     Route: 060
  14. DEXKETOPROFEN TROMETAMOL [Concomitant]
     Indication: BREAKTHROUGH PAIN
     Dosage: 75 MILLIGRAM DAILY;
     Route: 065
  15. GABAPENTIN [Concomitant]
     Indication: BREAKTHROUGH PAIN
     Dosage: 1800 MILLIGRAM DAILY; TITRATED DOSE
     Route: 065
     Dates: start: 200906
  16. VENLAFAXINE [Concomitant]
     Indication: BREAKTHROUGH PAIN
     Dosage: 75 MILLIGRAM DAILY; RETARD. CONTROLLED RELEASE
     Route: 065
     Dates: start: 201001
  17. DEXAMETHASONE [Concomitant]
     Dosage: 4 MILLIGRAM DAILY;
     Route: 065

REACTIONS (9)
  - Death [Fatal]
  - Drug dependence [Recovering/Resolving]
  - Self-medication [Recovered/Resolved]
  - Intentional drug misuse [Recovered/Resolved]
  - Drug dependence [Recovering/Resolving]
  - General physical health deterioration [Unknown]
  - Chest pain [Unknown]
  - Irritability [Unknown]
  - Agitation [Unknown]
